FAERS Safety Report 6186805-8 (Version None)
Quarter: 2009Q2

REPORT INFORMATION
  Report Type: 
  Country: None (occurrence: None)
  Receive Date: 20090508
  Receipt Date: 20090508
  Transmission Date: 20091009
  Serious: No
  Sender: FDA-Public Use
  Company Number: None

PATIENT
  Age: 47 Year
  Sex: Male
  Weight: 102.51 kg

DRUGS (1)
  1. NIACIN [Suspect]
     Indication: HYPERLIPIDAEMIA
     Dosage: 1000 MG BID PO
     Route: 048
     Dates: start: 20081220, end: 20090506

REACTIONS (3)
  - HEPATIC ENZYME INCREASED [None]
  - HYPERGLYCAEMIA [None]
  - RASH [None]
